FAERS Safety Report 5574576-5 (Version None)
Quarter: 2007Q4

REPORT INFORMATION
  Report Type: 
  Country: None (occurrence: None)
  Receive Date: 20071227
  Receipt Date: 20071219
  Transmission Date: 20080405
  Serious: Yes (Death, Hospitalization)
  Sender: FDA-Public Use
  Company Number: CZ-JNJFOC-20071205473

PATIENT
  Sex: Male

DRUGS (2)
  1. REMICADE [Suspect]
     Indication: ANKYLOSING SPONDYLITIS
     Route: 042
  2. NSAIDS [Concomitant]

REACTIONS (3)
  - LEGIONELLA INFECTION [None]
  - MULTI-ORGAN FAILURE [None]
  - SEPTIC SHOCK [None]
